FAERS Safety Report 6069842-3 (Version None)
Quarter: 2009Q1

REPORT INFORMATION
  Report Type: 
  Country: None (occurrence: None)
  Receive Date: 20090209
  Receipt Date: 20090202
  Transmission Date: 20090719
  Serious: Yes (Death)
  Sender: FDA-Public Use
  Company Number: BR-BIOGENIDEC-2008BI014542

PATIENT
  Age: 48 Year
  Sex: Female

DRUGS (7)
  1. AVONEX [Suspect]
     Indication: MULTIPLE SCLEROSIS
     Route: 030
     Dates: start: 20080201
  2. LEXAPRO [Concomitant]
     Indication: DEPRESSION
  3. AMITRIPTYLINE HCL [Concomitant]
     Indication: ANXIETY
  4. RIVOTRIL [Concomitant]
     Indication: PANIC DISORDER
  5. RISPERIDONE [Concomitant]
     Indication: PANIC REACTION
  6. LAMITOR [Concomitant]
     Indication: PANIC REACTION
  7. SERENATA [Concomitant]
     Indication: PANIC REACTION

REACTIONS (13)
  - ARTHRALGIA [None]
  - CRYING [None]
  - DEATH [None]
  - DIARRHOEA [None]
  - DIZZINESS [None]
  - HEADACHE [None]
  - HYPERTENSION [None]
  - INFLUENZA LIKE ILLNESS [None]
  - MALAISE [None]
  - OEDEMA PERIPHERAL [None]
  - PAIN [None]
  - PYREXIA [None]
  - TACHYCARDIA [None]
